FAERS Safety Report 5326866-9 (Version None)
Quarter: 2007Q2

REPORT INFORMATION
  Report Type: 
  Country: None (occurrence: None)
  Receive Date: 20070511
  Receipt Date: 20070502
  Transmission Date: 20071010
  Serious: Yes (Hospitalization)
  Sender: FDA-Public Use
  Company Number: 155775ISR

PATIENT
  Age: 50 Year
  Sex: Female

DRUGS (8)
  1. PACLITAXEL [Suspect]
     Indication: BONE DISORDER
     Dosage: (241 MG, J1=J14), INTRAVENOUS
     Route: 042
     Dates: start: 20070222, end: 20070308
  2. PACLITAXEL [Suspect]
     Indication: BREAST NEOPLASM
     Dosage: (241 MG, J1=J14), INTRAVENOUS
     Route: 042
     Dates: start: 20070222, end: 20070308
  3. PACLITAXEL [Suspect]
     Indication: LIVER DISORDER
     Dosage: (241 MG, J1=J14), INTRAVENOUS
     Route: 042
     Dates: start: 20070222, end: 20070308
  4. GEMCITABINE [Concomitant]
  5. DEXAMETHASONE 0.5MG TAB [Concomitant]
  6. DEXCHLORPHENIRAMINE [Concomitant]
  7. RANITIDINE [Concomitant]
  8. ONDANSETRON [Concomitant]

REACTIONS (6)
  - CYANOSIS [None]
  - HYPERTENSION [None]
  - LOSS OF CONSCIOUSNESS [None]
  - MALAISE [None]
  - OXYGEN SATURATION DECREASED [None]
  - TACHYCARDIA [None]
